FAERS Safety Report 15315707 (Version 1)
Quarter: 2018Q3

REPORT INFORMATION
  Report Type: Spontaneous
  Country: US (occurrence: US)
  Receive Date: 20180815
  Receipt Date: 20180815
  Transmission Date: 20181010
  Serious: No
  Sender: FDA-Public Use
  Company Number: None

PATIENT
  Age: 19 Year
  Sex: Female
  Weight: 74.25 kg

DRUGS (5)
  1. IUD NOS [Concomitant]
     Active Substance: COPPER OR LEVONORGESTREL
     Indication: DEPRESSION
  2. ST.JOHN^S WORT [Concomitant]
  3. IUD NOS [Concomitant]
     Active Substance: COPPER OR LEVONORGESTREL
  4. SERTRALINE 150 MG [Suspect]
     Active Substance: SERTRALINE HYDROCHLORIDE
     Indication: DEPRESSION
  5. IUD NOS [Concomitant]
     Active Substance: COPPER OR LEVONORGESTREL
     Indication: ANXIETY

REACTIONS (7)
  - Diarrhoea [None]
  - Irritability [None]
  - Feeling abnormal [None]
  - Paraesthesia [None]
  - Fatigue [None]
  - Dizziness [None]
  - Confusional state [None]
